FAERS Safety Report 14816614 (Version 1)
Quarter: 2018Q2

REPORT INFORMATION
  Report Type: Other
  Country: EG (occurrence: EG)
  Receive Date: 20180426
  Receipt Date: 20180426
  Transmission Date: 20180711
  Serious: Yes (Other)
  Sender: FDA-Public Use
  Company Number: EG-VALIDUS PHARMACEUTICALS LLC-EG-2018VAL000704

PATIENT
  Age: 7 Year
  Sex: Male

DRUGS (1)
  1. CLAFORAN [Suspect]
     Active Substance: CEFOTAXIME SODIUM
     Indication: UPPER RESPIRATORY TRACT INFECTION
     Dosage: 0.5 G, EVERY 12 HOURS
     Route: 030
     Dates: start: 20170101, end: 20170102

REACTIONS (5)
  - Hypotension [Recovered/Resolved]
  - Tachycardia [Recovered/Resolved]
  - Erythema [Recovered/Resolved]
  - Dyspnoea [Recovered/Resolved]
  - Hypersensitivity [Recovered/Resolved]

NARRATIVE: CASE EVENT DATE: 20170101
